FAERS Safety Report 7558404-4 (Version None)
Quarter: 2011Q2

REPORT INFORMATION
  Report Type: 
  Country: None (occurrence: None)
  Receive Date: 20110620
  Receipt Date: 20110607
  Transmission Date: 20111010
  Serious: Yes (Other)
  Sender: FDA-Public Use
  Company Number: PHHY2011BR13944

PATIENT
  Sex: Female

DRUGS (1)
  1. DIOVAN HCT [Suspect]
     Dosage: 160 MG VALSARTAN AND 12.5 MG HYDROCHLOROTHIAZIDE

REACTIONS (12)
  - BACK PAIN [None]
  - DIZZINESS [None]
  - SWOLLEN TONGUE [None]
  - OEDEMA PERIPHERAL [None]
  - ABDOMINAL PAIN UPPER [None]
  - MUSCLE SPASMS [None]
  - GASTRITIS EROSIVE [None]
  - TINNITUS [None]
  - DYSPEPSIA [None]
  - DYSPNOEA [None]
  - MIGRAINE [None]
  - ARRHYTHMIA [None]
